FAERS Safety Report 13558891 (Version 1)
Quarter: 2017Q2

REPORT INFORMATION
  Report Type: Spontaneous
  Country: US (occurrence: US)
  Receive Date: 20170518
  Receipt Date: 20170518
  Transmission Date: 20170830
  Serious: No
  Sender: FDA-Public Use
  Company Number: US-009507513-1705USA004152

PATIENT
  Sex: Female
  Weight: 78.2 kg

DRUGS (12)
  1. ZEPATIER [Suspect]
     Active Substance: ELBASVIR\GRAZOPREVIR
     Indication: HEPATITIS C
     Dosage: 1 TAB, DAILY
     Route: 048
     Dates: start: 20161222, end: 20170414
  2. ATORVASTATIN [Concomitant]
     Active Substance: ATORVASTATIN
  3. GABAPENTIN. [Concomitant]
     Active Substance: GABAPENTIN
  4. ALBUTEROL. [Concomitant]
     Active Substance: ALBUTEROL
  5. VITAMINS (UNSPECIFIED) [Concomitant]
     Active Substance: VITAMINS
  6. PROVENTIL [Suspect]
     Active Substance: ALBUTEROL
  7. ESOMEPRAZOLE MAGNESIUM. [Concomitant]
     Active Substance: ESOMEPRAZOLE MAGNESIUM
  8. NORTRIPTYLINE [Concomitant]
     Active Substance: NORTRIPTYLINE
  9. CELECOXIB. [Concomitant]
     Active Substance: CELECOXIB
  10. CHLORHEXIDINE GLUCONATE. [Concomitant]
     Active Substance: CHLORHEXIDINE GLUCONATE
  11. MUCINEX [Concomitant]
     Active Substance: GUAIFENESIN
  12. REBETOL [Suspect]
     Active Substance: RIBAVIRIN
     Dosage: 1200 MG, DAILY
     Route: 048

REACTIONS (3)
  - Overdose [Unknown]
  - Drug dose omission [Unknown]
  - Vomiting [Unknown]

NARRATIVE: CASE EVENT DATE: 20170125
